FAERS Safety Report 9169214 (Version 1)
Quarter: 2013Q1

REPORT INFORMATION
  Report Type: Spontaneous
  Country: FR (occurrence: FR)
  Receive Date: 20130318
  Receipt Date: 20130318
  Transmission Date: 20140127
  Serious: Yes (Hospitalization)
  Sender: FDA-Public Use
  Company Number: FR-BRISTOL-MYERS SQUIBB COMPANY-17456468

PATIENT
  Age: 65 Year
  Sex: Male

DRUGS (6)
  1. COAPROVEL TABS 300MG/ 25MG [Suspect]
     Dosage: IRBESARTAN 300 MG, HYDROCHLOROTHIAZIDE 25 MG
     Route: 048
     Dates: end: 20130105
  2. PARACETAMOL [Suspect]
     Dosage: PARACETAMOL MACOPHARMA
     Route: 042
     Dates: start: 20130104, end: 20130105
  3. CEFTRIAXONE [Suspect]
     Dosage: 04- AND 05-JAN-2013?CEFTRIAXONE PANPHARMA
     Route: 042
     Dates: start: 20130104, end: 20130105
  4. CONTRAMAL [Suspect]
     Dosage: CONTRAMAL 50 MG CAPSULE ?04- AND 05-JAN-2013.
     Route: 048
     Dates: start: 20130104, end: 20130105
  5. ASPIRIN [Concomitant]
  6. DAFALGAN [Concomitant]

REACTIONS (4)
  - Infection [Recovered/Resolved]
  - Urticaria [Recovered/Resolved]
  - Face oedema [Recovered/Resolved]
  - Dysphonia [Recovered/Resolved]
